FAERS Safety Report 10150097 (Version 3)
Quarter: 2014Q2

REPORT INFORMATION
  Report Type: Other
  Country: US (occurrence: US)
  Receive Date: 20140502
  Receipt Date: 20140521
  Transmission Date: 20141212
  Serious: Yes (Hospitalization, Other)
  Sender: FDA-Public Use
  Company Number: US-INCYTE CORPORATION-2014IN000572

PATIENT
  Age: 64 Year
  Sex: Male
  Weight: 61.68 kg

DRUGS (4)
  1. JAKAFI [Suspect]
     Indication: MYELOFIBROSIS
     Dosage: 15 MG, BID
     Route: 048
     Dates: start: 20130818
  2. JAKAFI [Suspect]
     Dosage: 15 MG, BID
     Route: 048
     Dates: start: 20130916, end: 20131002
  3. JAKAFI [Suspect]
     Dosage: 15 MG, BID
     Route: 048
     Dates: start: 20131001, end: 20131010
  4. PROCRIT                            /00909301/ [Concomitant]

REACTIONS (5)
  - Oesophageal varices haemorrhage [Recovered/Resolved]
  - Bone marrow failure [Recovered/Resolved]
  - Gastrointestinal haemorrhage [Recovered/Resolved]
  - Varices oesophageal [Recovered/Resolved]
  - Haemoglobin decreased [Recovered/Resolved]
